FAERS Safety Report 21985367 (Version 1)
Quarter: 2023Q1

REPORT INFORMATION
  Report Type: Spontaneous
  Country: US (occurrence: None)
  Receive Date: 20230211
  Receipt Date: 20230211
  Transmission Date: 20230417
  Serious: Yes (Other)
  Sender: FDA-Public Use
  Company Number: None

PATIENT
  Age: 38 Year
  Sex: Female
  Weight: 63.5 kg

DRUGS (2)
  1. MIRENA [Suspect]
     Active Substance: LEVONORGESTREL
     Dates: start: 20220929, end: 20221117
  2. UNSPECIFIED INGREDIENT [Suspect]
     Active Substance: UNSPECIFIED INGREDIENT

REACTIONS (7)
  - Pain [None]
  - Embedded device [None]
  - Post procedural haemorrhage [None]
  - Uterine haematoma [None]
  - Uterine inflammation [None]
  - Parametritis [None]
  - Pain [None]

NARRATIVE: CASE EVENT DATE: 20221117
